FAERS Safety Report 9464995 (Version 1)
Quarter: 2013Q3

REPORT INFORMATION
  Report Type: Report from Study
  Country: CA (occurrence: CA)
  Receive Date: 20130819
  Receipt Date: 20130819
  Transmission Date: 20140515
  Serious: Yes (Hospitalization)
  Sender: FDA-Public Use
  Company Number: CA-BAXTER-2013BAX031802

PATIENT
  Age: 73 Year
  Sex: Male

DRUGS (29)
  1. PROCYTOX (CYCLOPHOSPHAMIDE) 1000MG/VIAL [Suspect]
     Indication: DIFFUSE LARGE B-CELL LYMPHOMA
     Route: 042
     Dates: start: 20130313
  2. PROCYTOX (CYCLOPHOSPHAMIDE) 1000MG/VIAL [Suspect]
     Route: 042
     Dates: start: 20130711
  3. DOXORUBICIN [Suspect]
     Indication: DIFFUSE LARGE B-CELL LYMPHOMA
     Route: 042
     Dates: start: 20130313
  4. DOXORUBICIN [Suspect]
     Route: 042
     Dates: start: 20130711
  5. VINCRISTINE [Suspect]
     Indication: DIFFUSE LARGE B-CELL LYMPHOMA
     Route: 042
     Dates: start: 20130313
  6. VINCRISTINE [Suspect]
     Route: 042
     Dates: start: 20130711
  7. PREDNISONE [Suspect]
     Indication: DIFFUSE LARGE B-CELL LYMPHOMA
     Route: 065
     Dates: start: 20130312
  8. PREDNISONE [Suspect]
     Route: 065
     Dates: start: 20130715
  9. ATORVASTATIN CALCIUM [Concomitant]
     Indication: HYPERLIPIDAEMIA
     Route: 065
     Dates: start: 2004
  10. ATENOLOL [Concomitant]
     Indication: PRODUCT USED FOR UNKNOWN INDICATION
     Route: 065
     Dates: start: 1990
  11. LEVOTHYROXINE SODIUM [Concomitant]
     Indication: HYPOTHYROIDISM
     Route: 065
     Dates: start: 2007
  12. PANTOPRAZOLE [Concomitant]
     Indication: DYSPEPSIA
     Route: 065
  13. AMLODIPINE [Concomitant]
     Indication: HYPERTENSION
     Route: 065
     Dates: start: 1990
  14. ASPIRIN [Concomitant]
     Indication: PRODUCT USED FOR UNKNOWN INDICATION
     Route: 065
     Dates: start: 2007
  15. ISOSORBIDE DINITRATE [Concomitant]
     Indication: ANGINA PECTORIS
     Route: 065
  16. PARACETAMOL [Concomitant]
     Indication: ARTHRALGIA
     Route: 065
     Dates: start: 201302
  17. PARACETAMOL [Concomitant]
     Route: 065
     Dates: start: 20130312
  18. ONDANSETRON HYDROCHLORIDE [Concomitant]
     Indication: PRODUCT USED FOR UNKNOWN INDICATION
     Route: 065
     Dates: start: 20130312
  19. IMMUNOGLOBULIN [Concomitant]
     Indication: HYPOGAMMAGLOBULINAEMIA
     Route: 042
     Dates: start: 2008
  20. DIPHENHYDRAMINE HYDROCHLORIDE [Concomitant]
     Indication: PREMEDICATION
     Route: 065
     Dates: start: 20130312
  21. RANITIDINE HYDROCHLORIDE [Concomitant]
     Indication: PREMEDICATION
     Route: 065
     Dates: start: 20130319
  22. CETIRIZINE HYDROCHLORIDE [Concomitant]
     Indication: PREMEDICATION
     Route: 065
     Dates: start: 20130326
  23. GABAPENTIN [Concomitant]
     Indication: PAIN IN EXTREMITY
     Route: 065
     Dates: start: 20130501
  24. METOCLOPRAMIDE HYDROCHLORIDE [Concomitant]
     Indication: NAUSEA
     Route: 065
     Dates: start: 20130612
  25. OMEPRAZOLE [Concomitant]
     Indication: NAUSEA
     Route: 065
     Dates: start: 20130612
  26. VANCOMYCIN [Concomitant]
     Indication: DEVICE RELATED INFECTION
     Route: 065
     Dates: start: 20130703, end: 20130704
  27. CLOXACILLIN SODIUM [Concomitant]
     Indication: DEVICE RELATED INFECTION
     Route: 065
     Dates: start: 20130705
  28. CEFTRIAXONE SODIUM [Concomitant]
     Indication: DEVICE RELATED INFECTION
     Route: 065
     Dates: start: 20130702, end: 20130702
  29. ACICLOVIR [Concomitant]
     Indication: LIP INFECTION
     Route: 065
     Dates: start: 20130710

REACTIONS (1)
  - Sepsis [Recovering/Resolving]
